FAERS Safety Report 7461460-5 (Version None)
Quarter: 2011Q2

REPORT INFORMATION
  Report Type: 
  Country: None (occurrence: None)
  Receive Date: 20110506
  Receipt Date: 20110503
  Transmission Date: 20111010
  Serious: Yes (Other)
  Sender: FDA-Public Use
  Company Number: US-PFIZER INC-2011044450

PATIENT
  Sex: Female

DRUGS (4)
  1. LEVAQUIN [Concomitant]
     Indication: EAR INFECTION
     Dosage: UNK
     Dates: start: 20080101, end: 20100101
  2. LISINOPRIL [Concomitant]
     Indication: HYPERTENSION
     Dosage: UNK
     Dates: start: 20080101, end: 20100101
  3. CHANTIX [Suspect]
     Indication: SMOKING CESSATION THERAPY
     Dosage: VARENICLINE STARTER PACK 0.5MG AND MONTHLY CONTINUING PACK 1MG
     Dates: start: 20090412, end: 20090601
  4. AZITHROMYCIN [Concomitant]
     Indication: ANTIBIOTIC THERAPY
     Dosage: UNK
     Dates: start: 20080101, end: 20100101

REACTIONS (2)
  - SUICIDAL IDEATION [None]
  - DEPRESSION [None]
